FAERS Safety Report 6220610-9 (Version None)
Quarter: 2009Q2

REPORT INFORMATION
  Report Type: 
  Country: None (occurrence: None)
  Receive Date: 20090610
  Receipt Date: 20090604
  Transmission Date: 20091009
  Serious: Yes (Other)
  Sender: FDA-Public Use
  Company Number: GB-ROCHE-630385

PATIENT
  Sex: Female
  Weight: 113 kg

DRUGS (2)
  1. ORLISTAT [Suspect]
     Indication: OBESITY
     Route: 048
     Dates: start: 20081004
  2. CITALOPRAM HYDROBROMIDE [Concomitant]
     Indication: STRESS
     Route: 048

REACTIONS (2)
  - APPENDICITIS [None]
  - UMBILICAL HERNIA [None]
